FAERS Safety Report 5765866-1 (Version None)
Quarter: 2008Q2

REPORT INFORMATION
  Report Type: 
  Country: None (occurrence: None)
  Receive Date: 20080611
  Receipt Date: 20080602
  Transmission Date: 20081010
  Serious: Yes (Other)
  Sender: FDA-Public Use
  Company Number: US-ABBOTT-08P-163-0440744-00

PATIENT
  Sex: Male
  Weight: 75.818 kg

DRUGS (3)
  1. HUMIRA [Suspect]
     Indication: PSORIATIC ARTHROPATHY
     Route: 058
     Dates: start: 20070601, end: 20080208
  2. ZOLPIDEM TARTRATE [Concomitant]
     Indication: SLEEP DISORDER THERAPY
     Route: 048
  3. VICODIN [Concomitant]
     Indication: PAIN
     Route: 048

REACTIONS (2)
  - CHEST PAIN [None]
  - HEPATIC NEOPLASM MALIGNANT [None]
